FAERS Safety Report 9916454 (Version 1)
Quarter: 2014Q1

REPORT INFORMATION
  Report Type: Spontaneous
  Country: US (occurrence: US)
  Receive Date: 20140221
  Receipt Date: 20140221
  Transmission Date: 20141002
  Serious: Yes (Other)
  Sender: FDA-Public Use
  Company Number: US-PFIZER INC-2014047345

PATIENT
  Sex: Male

DRUGS (1)
  1. PREPARATION H [Suspect]
     Dosage: UNK

REACTIONS (1)
  - Haemorrhage [Unknown]
